FAERS Safety Report 7805308-5 (Version None)
Quarter: 2011Q4

REPORT INFORMATION
  Report Type: 
  Country: None (occurrence: None)
  Receive Date: 20111010
  Receipt Date: 20111003
  Transmission Date: 20120403
  Serious: No
  Sender: FDA-Public Use
  Company Number: US-PFIZER INC-2011236094

PATIENT
  Sex: Female
  Weight: 63.492 kg

DRUGS (2)
  1. XANAX [Suspect]
     Indication: NERVOUSNESS
     Dosage: 0.25 MG, 2X/DAY
     Route: 048
     Dates: start: 19950101
  2. XANAX [Suspect]
     Route: 048

REACTIONS (3)
  - NERVOUSNESS [None]
  - TREMOR [None]
  - DRUG INEFFECTIVE [None]
